FAERS Safety Report 20954129 (Version 2)
Quarter: 2022Q3

REPORT INFORMATION
  Report Type: Spontaneous
  Country: JP (occurrence: JP)
  Receive Date: 20220614
  Receipt Date: 20220715
  Transmission Date: 20221027
  Serious: Yes (Other)
  Sender: FDA-Public Use
  Company Number: JP-MSD-2206JPN000689J

PATIENT
  Age: 64 Year
  Sex: Male

DRUGS (1)
  1. KEYTRUDA [Suspect]
     Active Substance: PEMBROLIZUMAB
     Indication: Large cell lung cancer
     Dosage: 200 MILLIGRAM, QD
     Route: 065
     Dates: start: 20170731, end: 20190604

REACTIONS (1)
  - Retroperitoneal fibrosis [Recovered/Resolved]

NARRATIVE: CASE EVENT DATE: 20190604
